FAERS Safety Report 14427868 (Version 1)
Quarter: 2018Q1

REPORT INFORMATION
  Report Type: Spontaneous
  Country: CH (occurrence: CH)
  Receive Date: 20180123
  Receipt Date: 20180123
  Transmission Date: 20180509
  Serious: Yes (Hospitalization)
  Sender: FDA-Public Use
  Company Number: CH-ASTRAZENECA-2018SE06738

PATIENT
  Age: 30372 Day
  Sex: Female
  Weight: 59.2 kg

DRUGS (10)
  1. BRUFEN [Suspect]
     Active Substance: IBUPROFEN
     Route: 048
     Dates: start: 2017, end: 20171222
  2. BONVIVA [Concomitant]
     Active Substance: IBANDRONATE SODIUM
     Route: 048
  3. ASPIRIN CARDIO [Concomitant]
     Active Substance: ASPIRIN
     Route: 048
  4. ISOPTIN [Concomitant]
     Active Substance: VERAPAMIL HYDROCHLORIDE
     Route: 048
  5. OMEZOL MEPHA [Concomitant]
     Active Substance: OMEPRAZOLE
     Route: 048
  6. NOVALGIN (METAMIZOLE SODIUM) [Suspect]
     Active Substance: METAMIZOLE SODIUM
     Route: 048
     Dates: start: 2017, end: 20171222
  7. ARICEPT [Concomitant]
     Active Substance: DONEPEZIL HYDROCHLORIDE
     Route: 048
  8. ATACAND [Suspect]
     Active Substance: CANDESARTAN CILEXETIL
     Route: 048
     Dates: end: 20171222
  9. LEXOTANIL [Concomitant]
     Active Substance: BROMAZEPAM
     Route: 048
  10. CALCIMAGON D3 [Concomitant]
     Active Substance: CALCIUM\CHOLECALCIFEROL
     Route: 048

REACTIONS (1)
  - Acute kidney injury [Recovered/Resolved]

NARRATIVE: CASE EVENT DATE: 20171222
